FAERS Safety Report 21247398 (Version 9)
Quarter: 2024Q3

REPORT INFORMATION
  Report Type: Report from Study
  Country: AR (occurrence: AR)
  Receive Date: 20220824
  Receipt Date: 20240812
  Transmission Date: 20241017
  Serious: Yes (Other)
  Sender: NOVARTIS
  Company Number: AR-NOVARTISPH-NVSC2022AR187758

PATIENT
  Age: 46 Year
  Sex: Female

DRUGS (3)
  1. KISQALI [Suspect]
     Active Substance: RIBOCICLIB
     Indication: Breast cancer metastatic
     Dosage: 600 MG, QD
     Route: 048
     Dates: start: 20220426
  2. KISQALI [Suspect]
     Active Substance: RIBOCICLIB
     Dosage: 200 MG, TID
     Route: 048
     Dates: start: 20220426
  3. KISQALI [Suspect]
     Active Substance: RIBOCICLIB
     Dosage: 400 MG
     Route: 065

REACTIONS (24)
  - Haemorrhage [Unknown]
  - Poisoning [Unknown]
  - Spinal fracture [Unknown]
  - Bone disorder [Unknown]
  - Malaise [Unknown]
  - Abdominal discomfort [Unknown]
  - Ovarian disorder [Unknown]
  - Scoliosis [Unknown]
  - Vertebral lesion [Unknown]
  - COVID-19 [Unknown]
  - Pain in extremity [Unknown]
  - Skin discolouration [Unknown]
  - Pruritus [Recovered/Resolved]
  - White blood cell count decreased [Unknown]
  - Platelet count decreased [Unknown]
  - Nausea [Unknown]
  - Back pain [Unknown]
  - Skin disorder [Unknown]
  - Dyspnoea [Unknown]
  - Throat irritation [Unknown]
  - Aphonia [Unknown]
  - Off label use [Unknown]
  - Pigmentation disorder [Unknown]
  - Muscle spasms [Unknown]

NARRATIVE: CASE EVENT DATE: 20230701
